FAERS Safety Report 10027006 (Version 1)
Quarter: 2014Q1

REPORT INFORMATION
  Report Type: Spontaneous
  Country: IT (occurrence: None)
  Receive Date: 20140318
  Receipt Date: 20140318
  Transmission Date: 20141002
  Serious: Yes (Hospitalization)
  Sender: FDA-Public Use
  Company Number: FK201400836

PATIENT
  Age: 47 Year
  Sex: Male

DRUGS (5)
  1. ROCURONIUM [Suspect]
     Indication: INDUCTION OF ANAESTHESIA
     Dosage: 1 IN 1 TOTAL, (NOT OTHEWISE SPECIFIED)
     Route: 042
     Dates: start: 20131209, end: 20131209
  2. DELORAZEPAM [Concomitant]
  3. FENTANEST [Concomitant]
  4. PRAMIPEXOLE HYDROCHLORIDE MONOHYDRATE [Concomitant]
  5. PROPOFOL [Concomitant]

REACTIONS (4)
  - Epiglottic oedema [None]
  - Face oedema [None]
  - Rash [None]
  - Tongue oedema [None]
